FAERS Safety Report 6340077 (Version 2)
Quarter: 2013Q2

REPORT INFORMATION
  Report Type: Spontaneous
  Country: US (occurrence: US)
  Receive Date: 20070622
  Receipt Date: 20130521
  Transmission Date: 20140414
  Serious: No
  Sender: FDA-Public Use
  Company Number: US-ASTRAZENECA-2005UW08872

PATIENT
  Age: 49 Year
  Sex: Female
  Weight: 49.9 kg

DRUGS (8)
  1. PULMICORT RESPULES [Suspect]
     Indication: ASTHMA
     Dosage: 0.5 MG/2 ML, EVERYDAY
     Route: 055
     Dates: start: 20050110
  2. PULMICORT RESPULES [Suspect]
     Indication: ASTHMA
     Dosage: 0.25 MG/2 ML
     Route: 055
  3. XOPENEX [Concomitant]
     Indication: ASTHMA
  4. ZYRTEC [Concomitant]
  5. ASPIRINE [Concomitant]
  6. ATROVENT [Concomitant]
  7. EPINEPHRINE [Concomitant]
  8. MAXAIR [Concomitant]

REACTIONS (3)
  - Tooth discolouration [Unknown]
  - Incorrect dose administered [Unknown]
  - Drug administration error [Unknown]
